FAERS Safety Report 4421488-6 (Version None)
Quarter: 2004Q3

REPORT INFORMATION
  Report Type: 
  Country: None (occurrence: None)
  Receive Date: 20040709
  Receipt Date: 20030911
  Transmission Date: 20050211
  Serious: Yes (Other)
  Sender: FDA-Public Use
  Company Number: US-SHR-03-013690

PATIENT
  Age: 47 Year
  Sex: Female
  Weight: 71.7 kg

DRUGS (5)
  1. ULTRAVIST 300 [Suspect]
     Indication: COMPUTERISED TOMOGRAM
     Dosage: 150 ML, 1 DOSE AT 2.3 ML/SECOND, INTRAVENOUS
     Route: 042
     Dates: start: 20030827, end: 20030827
  2. CALCIUM [Concomitant]
  3. GLUCOSAMINEW/CHONDROITIN SULFATES (MANGANESE, GLUCOSAMINE SULFATE, CHO [Concomitant]
  4. PRILOSEC [Concomitant]
  5. PAXIL CR [Concomitant]

REACTIONS (6)
  - DYSPNOEA [None]
  - HYPERSENSITIVITY [None]
  - NASAL CONGESTION [None]
  - PRURITUS [None]
  - VOMITING [None]
  - WHEEZING [None]
